FAERS Safety Report 21796076 (Version 1)
Quarter: 2022Q4

REPORT INFORMATION
  Report Type: Spontaneous
  Country: US (occurrence: None)
  Receive Date: 20221228
  Receipt Date: 20221228
  Transmission Date: 20230113
  Serious: No
  Sender: FDA-Public Use
  Company Number: None

PATIENT
  Age: 63 Year
  Sex: Female

DRUGS (2)
  1. MYCOPHENOLATE MOFETIL [Suspect]
     Active Substance: MYCOPHENOLATE MOFETIL
     Dosage: FREQUENCY : 3 TIMES A DAY;?
     Route: 048
     Dates: start: 201902
  2. PAXLOVID [Suspect]
     Active Substance: NIRMATRELVIR\RITONAVIR

REACTIONS (3)
  - Pneumonia [None]
  - COVID-19 [None]
  - Therapy interrupted [None]

NARRATIVE: CASE EVENT DATE: 20221101
